FAERS Safety Report 8513770-8 (Version None)
Quarter: 2012Q3

REPORT INFORMATION
  Report Type: 
  Country: None (occurrence: None)
  Receive Date: 20120717
  Receipt Date: 20110721
  Transmission Date: 20120928
  Serious: No
  Sender: FDA-Public Use
  Company Number: US-PFIZER INC-K201100852

PATIENT
  Sex: Female

DRUGS (1)
  1. SEPTRA [Suspect]
     Dosage: UNK

REACTIONS (6)
  - CARPAL TUNNEL SYNDROME [None]
  - RASH [None]
  - MUSCULOSKELETAL PAIN [None]
  - ARTHRALGIA [None]
  - PAIN [None]
  - NECK PAIN [None]
